FAERS Safety Report 10158128 (Version 1)
Quarter: 2014Q2

REPORT INFORMATION
  Report Type: Spontaneous
  Country: ES (occurrence: ES)
  Receive Date: 20140507
  Receipt Date: 20140507
  Transmission Date: 20141212
  Serious: Yes (Other)
  Sender: FDA-Public Use
  Company Number: ES-ACTAVIS-2014-09223

PATIENT
  Age: 80 Year
  Sex: Male

DRUGS (3)
  1. PHENYTOIN (AMALLC) [Suspect]
     Indication: GENERALISED TONIC-CLONIC SEIZURE
     Dosage: MAINTENANCE DOSES OF 300 MG/DAY
     Route: 048
  2. PHENYTOIN (AMALLC) [Suspect]
     Dosage: INITIAL 750 MG INTRAVENOUS BOLUS, TO BE FOLLOWED BY MAINTENANCE DOSES OF 300 MG/DAY
     Route: 042
  3. PARACETAMOL [Concomitant]
     Indication: PAIN
     Dosage: UNKNOWN
     Route: 065

REACTIONS (1)
  - Dyskinesia [Recovered/Resolved]
